FAERS Safety Report 4945902-2 (Version None)
Quarter: 2006Q1

REPORT INFORMATION
  Report Type: 
  Country: None (occurrence: None)
  Receive Date: 20060117
  Receipt Date: 20050104
  Transmission Date: 20060701
  Serious: Yes (Hospitalization)
  Sender: FDA-Public Use
  Company Number: A03200500063

PATIENT
  Age: 70 Year
  Sex: Female
  Weight: 56.6996 kg

DRUGS (6)
  1. PLAVIX [Suspect]
     Indication: STENT PLACEMENT
     Dosage: 75 MG QD - ORAL
     Route: 048
     Dates: start: 20041101
  2. ATENOLOL [Concomitant]
  3. METFORMIN HYDROCHLORIDE [Concomitant]
  4. OMEPRAZOLE [Concomitant]
  5. MULTIVITAMIN [Concomitant]
  6. ALPRAZOLAM [Concomitant]

REACTIONS (3)
  - ANGINA PECTORIS [None]
  - DIZZINESS [None]
  - MUSCLE SPASMS [None]
